FAERS Safety Report 10281232 (Version 2)
Quarter: 2014Q3

REPORT INFORMATION
  Report Type: Spontaneous
  Country: DE (occurrence: SI)
  Receive Date: 20140707
  Receipt Date: 20140722
  Transmission Date: 20150326
  Serious: Yes (Life-Threatening, Hospitalization)
  Sender: FDA-Public Use
  Company Number: SI-FRI-1000068743

PATIENT
  Age: 74 Year
  Sex: Female

DRUGS (8)
  1. HELEX [Concomitant]
     Dosage: 0.12 MG
     Route: 048
  2. SANVAL [Concomitant]
     Active Substance: ZOLPIDEM TARTRATE
     Route: 048
  3. MIRZATEN [Concomitant]
     Active Substance: MIRTAZAPINE
     Dosage: 15 MG
     Route: 048
  4. MEMANTINE [Suspect]
     Active Substance: MEMANTINE
     Indication: DEMENTIA ALZHEIMER^S TYPE
     Dosage: 5 MG
     Route: 048
     Dates: start: 20140211, end: 20140213
  5. XARELTO [Concomitant]
     Active Substance: RIVAROXABAN
     Dosage: 15 MG
  6. AROMASIN [Concomitant]
     Active Substance: EXEMESTANE
     Dosage: 25 MG
     Route: 048
  7. LORISTA [Concomitant]
     Active Substance: LOSARTAN POTASSIUM
     Dosage: 50 MG
     Route: 048
  8. XGEVA [Concomitant]
     Active Substance: DENOSUMAB
     Route: 058

REACTIONS (3)
  - Loss of consciousness [Recovered/Resolved]
  - Blood pressure increased [Recovered/Resolved]
  - Convulsion [Recovered/Resolved]

NARRATIVE: CASE EVENT DATE: 20140213
